FAERS Safety Report 24860309 (Version 3)
Quarter: 2025Q3

REPORT INFORMATION
  Report Type: Report from Study
  Country: EG (occurrence: EG)
  Receive Date: 20250120
  Receipt Date: 20250820
  Transmission Date: 20251021
  Serious: No
  Sender: SANDOZ
  Company Number: EG-SANDOZ-SDZ2025EG002378

PATIENT
  Sex: Female

DRUGS (1)
  1. OMNITROPE [Suspect]
     Active Substance: SOMATROPIN
     Indication: Growth hormone deficiency
     Route: 058
     Dates: start: 20240119

REACTIONS (5)
  - Product substitution [Unknown]
  - Therapy cessation [Unknown]
  - Circumstance or information capable of leading to medication error [Unknown]
  - Drug administered in wrong device [Unknown]
  - Product availability issue [Unknown]
